FAERS Safety Report 4389818-0 (Version None)
Quarter: 2004Q2

REPORT INFORMATION
  Report Type: 
  Country: None (occurrence: None)
  Receive Date: 20040630
  Receipt Date: 20040616
  Transmission Date: 20050107
  Serious: Yes (Hospitalization, Other)
  Sender: FDA-Public Use
  Company Number: A0514922A

PATIENT
  Age: 59 Year
  Sex: Female

DRUGS (2)
  1. NICORETTE [Suspect]
     Indication: EX-SMOKER
     Dosage: TRANSBUCCAL
  2. LORAZEPAM [Concomitant]

REACTIONS (13)
  - ANXIETY [None]
  - ASTHMA [None]
  - ATTENTION DEFICIT/HYPERACTIVITY DISORDER [None]
  - CHRONIC OBSTRUCTIVE AIRWAYS DISEASE [None]
  - DIABETES MELLITUS [None]
  - MENTAL DISORDER [None]
  - MOUTH ULCERATION [None]
  - MULTIPLE ALLERGIES [None]
  - NEUROPATHY [None]
  - OEDEMA [None]
  - ORAL MUCOSAL BLISTERING [None]
  - RESPIRATORY DISORDER [None]
  - ROTATOR CUFF SYNDROME [None]
